FAERS Safety Report 9034215 (Version 1)
Quarter: 2013Q1

REPORT INFORMATION
  Report Type: Spontaneous
  Country: US (occurrence: None)
  Receive Date: 20130116
  Receipt Date: 20130116
  Transmission Date: 20140127
  Serious: Yes (Disabling, Other)
  Sender: FDA-Public Use
  Company Number: None

PATIENT
  Age: 45 Year
  Sex: Female
  Weight: 53.07 kg

DRUGS (1)
  1. CYMBALTA [Suspect]
     Indication: MOOD SWINGS
     Dosage: 1 EVERY MORNING
     Dates: start: 20060226, end: 20130115

REACTIONS (3)
  - Fall [None]
  - Abasia [None]
  - Insomnia [None]
